FAERS Safety Report 5360703-1 (Version None)
Quarter: 2007Q2

REPORT INFORMATION
  Report Type: 
  Country: None (occurrence: None)
  Receive Date: 20070614
  Receipt Date: 20070606
  Transmission Date: 20071010
  Serious: No
  Sender: FDA-Public Use
  Company Number: CC07-101

PATIENT
  Sex: Male

DRUGS (1)
  1. ALBUTEROL [Suspect]
     Indication: ASTHMA
     Dosage: 2 ACTUACIONS AS NEEDED

REACTIONS (2)
  - DRUG INEFFECTIVE [None]
  - PHARMACEUTICAL PRODUCT COMPLAINT [None]
